FAERS Safety Report 22601589 (Version 1)
Quarter: 2023Q2

REPORT INFORMATION
  Report Type: Spontaneous
  Country: JP (occurrence: JP)
  Receive Date: 20230614
  Receipt Date: 20230614
  Transmission Date: 20230721
  Serious: Yes (Other)
  Sender: FDA-Public Use
  Company Number: JP-Eisai Medical Research-EC-2023-142078

PATIENT
  Age: 66 Year
  Sex: Female

DRUGS (9)
  1. LENVIMA [Suspect]
     Active Substance: LENVATINIB
     Indication: Endometrial cancer
     Route: 048
     Dates: start: 20220517, end: 20220810
  2. LENVIMA [Suspect]
     Active Substance: LENVATINIB
     Dosage: DOSE AND FREQUENCY UNKNOWN
     Route: 048
     Dates: start: 202210, end: 20221122
  3. KEYTRUDA [Suspect]
     Active Substance: PEMBROLIZUMAB
     Indication: Endometrial cancer
     Route: 041
     Dates: start: 20220517, end: 202208
  4. KEYTRUDA [Suspect]
     Active Substance: PEMBROLIZUMAB
     Dosage: DOSE AND FREQUENCY UNKNOWN
     Route: 041
     Dates: start: 202210, end: 20221122
  5. LOXOPROFEN [Concomitant]
     Active Substance: LOXOPROFEN
     Indication: Myalgia
     Dosage: ON AN AS-NEEDED BASIS (DOSE UNKNOWN)
     Route: 065
     Dates: start: 20220628, end: 2022
  6. LOXOPROFEN [Concomitant]
     Active Substance: LOXOPROFEN
     Dosage: DOSE AND FREQUENCY UNKNOWN
     Route: 065
     Dates: start: 20220705, end: 20220718
  7. TRAMADOL [Concomitant]
     Active Substance: TRAMADOL
     Indication: Myalgia
     Dosage: DOSE AND FREQUENCY UNKNOWN
     Route: 065
     Dates: start: 20220719
  8. LEVOTHYROXINE [Concomitant]
     Active Substance: LEVOTHYROXINE
     Indication: Hypothyroidism
     Dosage: DOSE AND FREQUENCY UNKNOWN
     Route: 065
  9. LEVOTHYROXINE [Concomitant]
     Active Substance: LEVOTHYROXINE
     Dosage: DOSE AND FREQUENCY UNKNOWN
     Route: 065
     Dates: start: 20220810

REACTIONS (2)
  - Rash [Recovering/Resolving]
  - Palmar-plantar erythrodysaesthesia syndrome [Recovered/Resolved]

NARRATIVE: CASE EVENT DATE: 20221122
